FAERS Safety Report 4326928-9 (Version None)
Quarter: 2004Q1

REPORT INFORMATION
  Report Type: 
  Country: None (occurrence: None)
  Receive Date: 20040319
  Receipt Date: 20040126
  Transmission Date: 20041129
  Serious: No
  Sender: FDA-Public Use
  Company Number: US-JNJFOC-20040105617

PATIENT
  Age: 35 Year
  Sex: Female
  Weight: 45.8133 kg

DRUGS (3)
  1. ORTHO EVRA [Suspect]
     Indication: MENSTRUATION IRREGULAR
     Dosage: 1 DOSE(S), 3 IN 4 WEEK, TRANSDERMAL
     Route: 062
     Dates: start: 20040125, end: 20040126
  2. ATIVAN [Concomitant]
  3. IRON (IRON) [Concomitant]

REACTIONS (4)
  - ABDOMINAL PAIN [None]
  - BREAST TENDERNESS [None]
  - DIZZINESS [None]
  - NAUSEA [None]
